FAERS Safety Report 8586666-3 (Version None)
Quarter: 2012Q3

REPORT INFORMATION
  Report Type: 
  Country: None (occurrence: None)
  Receive Date: 20120810
  Receipt Date: 20120807
  Transmission Date: 20120928
  Serious: No
  Sender: FDA-Public Use
  Company Number: US-B.I. PHARMACEUTICALS,INC./RIDGEFIELD-2012-BP-17741BP

PATIENT
  Sex: Female

DRUGS (6)
  1. SPIRIVA [Suspect]
     Indication: CHRONIC OBSTRUCTIVE PULMONARY DISEASE
     Dosage: 18 MCG
     Route: 055
     Dates: start: 20120201, end: 20120805
  2. ASPIRIN [Concomitant]
     Dosage: 81 MG
     Route: 048
  3. VITAMIN D [Concomitant]
     Dosage: :
     Route: 048
  4. PRAVASTATIN [Concomitant]
     Indication: BLOOD CHOLESTEROL INCREASED
     Dosage: 80 MG
     Route: 048
  5. RANITIDINE [Concomitant]
     Indication: ABDOMINAL PAIN UPPER
     Dosage: 300 MG
     Route: 048
  6. AZOR 1040 [Concomitant]
     Indication: HYPERTENSION
     Route: 048

REACTIONS (2)
  - CHEST PAIN [None]
  - TONGUE COATED [None]
